FAERS Safety Report 25049502 (Version 2)
Quarter: 2025Q1

REPORT INFORMATION
  Report Type: Report from Study
  Country: US (occurrence: US)
  Receive Date: 20250307
  Receipt Date: 20250327
  Transmission Date: 20250409
  Serious: Yes (Hospitalization, Other)
  Sender: UNITED THERAPEUTICS
  Company Number: US-UNITED THERAPEUTICS-UNT-2025-002015

PATIENT
  Age: 45 Year
  Sex: Female

DRUGS (5)
  1. TREPROSTINIL [Suspect]
     Active Substance: TREPROSTINIL
     Indication: Pulmonary arterial hypertension
     Dosage: 10 MG, TID
  2. TREPROSTINIL [Suspect]
     Active Substance: TREPROSTINIL
  3. ORENITRAM [Suspect]
     Active Substance: TREPROSTINIL
     Indication: Pulmonary arterial hypertension
  4. SILDENAFIL CITRATE [Concomitant]
     Active Substance: SILDENAFIL CITRATE
     Indication: Product used for unknown indication
  5. OPSUMIT [Concomitant]
     Active Substance: MACITENTAN
     Indication: Product used for unknown indication

REACTIONS (7)
  - Dyspnoea at rest [Not Recovered/Not Resolved]
  - Carbon dioxide decreased [Recovered/Resolved]
  - Diarrhoea [Recovered/Resolved]
  - Hypervolaemia [Not Recovered/Not Resolved]
  - Blood pH decreased [Unknown]
  - Blood bicarbonate decreased [Unknown]
  - Base excess increased [Unknown]

NARRATIVE: CASE EVENT DATE: 20250207
